FAERS Safety Report 13676645 (Version 1)
Quarter: 2017Q2

REPORT INFORMATION
  Report Type: Spontaneous
  Country: US (occurrence: US)
  Receive Date: 20170622
  Receipt Date: 20170622
  Transmission Date: 20170830
  Serious: No
  Sender: FDA-Public Use
  Company Number: US-PFIZER INC-2017264991

PATIENT
  Age: 30 Year
  Sex: Female
  Weight: 53.29 kg

DRUGS (35)
  1. EFFEXOR XR [Concomitant]
     Active Substance: VENLAFAXINE HYDROCHLORIDE
     Dosage: 75 MG, DAILY
     Route: 048
  2. COLACE [Concomitant]
     Active Substance: DOCUSATE SODIUM
     Dosage: 100 MG, 2X/DAY
     Route: 048
  3. CARAFATE [Concomitant]
     Active Substance: SUCRALFATE
     Dosage: UNK, AS NEEDED (2 TEASPOON Q4HR )
     Route: 048
  4. ALOXI [Concomitant]
     Active Substance: PALONOSETRON HYDROCHLORIDE
     Indication: BREAST CANCER
     Dosage: 0.25 MG, UNK
     Route: 042
     Dates: start: 20170125, end: 20170427
  5. ZOMETA [Concomitant]
     Active Substance: ZOLEDRONIC ACID
     Indication: BONE NEOPLASM
     Dosage: 4 MG, UNK
     Route: 042
     Dates: start: 20170215
  6. NYSTATIN. [Concomitant]
     Active Substance: NYSTATIN
     Dosage: 5 ML, 4X/DAY
     Route: 048
  7. SUCRALFATE. [Concomitant]
     Active Substance: SUCRALFATE
     Dosage: 1 G, 4X/DAY (1 HOUR BEFORE MEALS AND AT BEDTIME)
     Route: 048
  8. DULCOLAX NOS [Concomitant]
     Active Substance: BISACODYL OR DOCUSATE SODIUM
     Dosage: 10 MG, UNK
  9. ACETAMINOPHEN. [Concomitant]
     Active Substance: ACETAMINOPHEN
     Indication: BREAST CANCER
     Dosage: 500 MG, UNK
     Route: 048
     Dates: start: 20170125, end: 20170427
  10. LEUPROLIDE [Concomitant]
     Active Substance: LEUPROLIDE
     Indication: BREAST CANCER METASTATIC
     Dosage: 22.5 MG, UNK (D1 Q3M)
     Route: 030
     Dates: start: 20170525
  11. ATIVAN [Concomitant]
     Active Substance: LORAZEPAM
     Dosage: 1 MG, DAILY (1 TAB BEFORE CHEMO)
     Route: 048
  12. DIFLUCAN [Concomitant]
     Active Substance: FLUCONAZOLE
     Dosage: 100 MG, AS NEEDED (EVERY 24 HOURS)
     Route: 048
  13. LORATADINE. [Concomitant]
     Active Substance: LORATADINE
     Dosage: 10 MG, DAILY
     Route: 048
  14. DOCETAXEL. [Concomitant]
     Active Substance: DOCETAXEL
     Indication: BREAST CANCER
     Dosage: 75 MG/M2, UNK
     Route: 042
     Dates: start: 20170125, end: 20170427
  15. ANUSOL-HC [Concomitant]
     Indication: HAEMORRHOIDS
     Dosage: 25 MG, EVERYDAY AS NEEDED
     Route: 054
  16. DILAUDID [Concomitant]
     Active Substance: HYDROMORPHONE HYDROCHLORIDE
     Indication: PAIN
     Dosage: 4 MG, AS NEEDED (EVERY 6 HOURS)
     Route: 048
  17. MEGESTROL [Concomitant]
     Active Substance: MEGESTROL
     Dosage: 625 MG, DAILY (TAKE 5 CC EVERY NIGHT)
     Route: 048
  18. PROMETHAZINE [Concomitant]
     Active Substance: PROMETHAZINE\PROMETHAZINE HYDROCHLORIDE
     Indication: NAUSEA
     Dosage: 50 MG, AS NEEDED (EVERY 4 HOURS)
     Route: 048
  19. SENNA-GEN [Concomitant]
     Indication: CONSTIPATION
     Dosage: 8.6 MG, AS NEEDED (2 TIMES PER DAY )
     Route: 048
  20. VITAMIN B12 [Concomitant]
     Active Substance: CYANOCOBALAMIN
     Dosage: 1000 UG, 1X/DAY
     Route: 048
  21. DIPHENHYDRAMINE. [Concomitant]
     Active Substance: DIPHENHYDRAMINE
     Indication: BREAST CANCER
     Dosage: 25 MG, UNK
     Route: 042
     Dates: start: 20170125, end: 20170427
  22. SODIUM CHLORIDE. [Concomitant]
     Active Substance: SODIUM CHLORIDE
     Indication: BREAST CANCER
     Dosage: 1000 ML, UNK
     Route: 042
     Dates: start: 20170127, end: 20170428
  23. ZOFRAN [Concomitant]
     Active Substance: ONDANSETRON HYDROCHLORIDE
     Dosage: 8 MG, 3X/DAY (EVERY 8 HOURS)
     Route: 048
  24. DEXAMETHASONE. [Concomitant]
     Active Substance: DEXAMETHASONE
     Indication: BREAST CANCER
     Dosage: 10 MG, UNK
     Route: 042
     Dates: start: 20170125, end: 20170427
  25. IBRANCE [Suspect]
     Active Substance: PALBOCICLIB
     Indication: BREAST CANCER
     Dosage: 125 MG, CYCLIC (DAYS 1 THROUGH 21 OF A 28-DAY TREATMENT CYCLE)
     Route: 048
  26. FENTANYL TRANSDERMAL SYSTEM [Concomitant]
     Active Substance: FENTANYL
     Dosage: UNK (50 MCG/HR PATCH 72 HOUR 1 PATCH TRANSDERMALLY EVERY 72 HOURS)
     Route: 062
  27. PROMETHAZINE [Concomitant]
     Active Substance: PROMETHAZINE\PROMETHAZINE HYDROCHLORIDE
     Indication: VOMITING
  28. TEMAZEPAM. [Concomitant]
     Active Substance: TEMAZEPAM
     Indication: INSOMNIA
     Dosage: 30 MG, AS NEEDED (EVERY DAY AT BEDTIME )
     Route: 048
  29. NEULASTA [Concomitant]
     Active Substance: PEGFILGRASTIM
     Indication: BREAST CANCER
     Dosage: 6 MG, UNK
     Route: 058
     Dates: start: 20170127, end: 20170428
  30. IBRANCE [Suspect]
     Active Substance: PALBOCICLIB
     Dosage: 125 MG, DAILY
     Route: 048
     Dates: start: 20170516
  31. PANTOPRAZOLE SODIUM. [Concomitant]
     Active Substance: PANTOPRAZOLE SODIUM
     Dosage: 40 MG, DAILY
     Route: 048
  32. PROTONIX [Concomitant]
     Active Substance: PANTOPRAZOLE SODIUM
     Dosage: 40 MG, DAILY
     Route: 048
  33. XANAX [Concomitant]
     Active Substance: ALPRAZOLAM
     Indication: ANXIETY
     Dosage: 1 MG, AS NEEDED (3 TIMES PER DAY, Q8HR)
     Route: 048
  34. LETROZOLE. [Suspect]
     Active Substance: LETROZOLE
     Indication: BREAST CANCER METASTATIC
     Dosage: 2.5 MG, CYCLIC (D1 -28 Q28D), (QDAY)
     Route: 048
     Dates: start: 20170516
  35. ONDANSETRON [Concomitant]
     Active Substance: ONDANSETRON
     Dosage: 8 MG, AS NEEDED (EVERY 8 HOURS )
     Route: 048

REACTIONS (4)
  - Nausea [Unknown]
  - Feeding disorder [Unknown]
  - Constipation [Unknown]
  - Vomiting [Unknown]
